FAERS Safety Report 8450753-0 (Version None)
Quarter: 2012Q2

REPORT INFORMATION
  Report Type: 
  Country: None (occurrence: None)
  Receive Date: 20120620
  Receipt Date: 20120605
  Transmission Date: 20120825
  Serious: Yes (Other)
  Sender: FDA-Public Use
  Company Number: JP-PFIZER INC-2012147242

PATIENT
  Age: 58 Year
  Sex: Female

DRUGS (3)
  1. EPL CAP. [Concomitant]
     Dosage: UNK
  2. LIPITOR [Suspect]
     Dosage: 10 MG DAILY
     Route: 048
     Dates: start: 20120401
  3. NORVASC [Concomitant]
     Dosage: UNK

REACTIONS (3)
  - CYSTITIS [None]
  - BLOOD URINE PRESENT [None]
  - URINARY RETENTION [None]
